FAERS Safety Report 8166990-9 (Version None)
Quarter: 2012Q1

REPORT INFORMATION
  Report Type: 
  Country: None (occurrence: None)
  Receive Date: 20120227
  Receipt Date: 20120215
  Transmission Date: 20120608
  Serious: Yes (Other)
  Sender: FDA-Public Use
  Company Number: FR-NOVOPROD-345324

PATIENT
  Age: 49 Year
  Sex: Female

DRUGS (6)
  1. ACTRAPID [Concomitant]
  2. MONAZOL [Concomitant]
     Dosage: UNK
     Dates: start: 20110801
  3. TOXINE BOTULINIQUE [Suspect]
     Indication: PRODUCT USED FOR UNKNOWN INDICATION
     Dosage: ONCE DOSE
     Route: 030
     Dates: start: 20110101, end: 20110101
  4. IBUPROFEN [Concomitant]
     Dosage: UNK
     Dates: start: 20110801
  5. LEVEMIR [Suspect]
     Indication: TYPE 1 DIABETES MELLITUS
     Dosage: UNK
     Route: 058
     Dates: start: 20090101
  6. RADIESSE [Concomitant]
     Dosage: UNK
     Dates: start: 20100101

REACTIONS (3)
  - ANTINUCLEAR ANTIBODY POSITIVE [None]
  - ARTHRALGIA [None]
  - URTICARIA [None]
